FAERS Safety Report 7145051-1 (Version None)
Quarter: 2010Q4

REPORT INFORMATION
  Report Type: 
  Country: None (occurrence: None)
  Receive Date: 20101208
  Receipt Date: 20101124
  Transmission Date: 20110411
  Serious: Yes (Other)
  Sender: FDA-Public Use
  Company Number: PHHY2010IN39232

PATIENT
  Age: 19 Year
  Sex: Female

DRUGS (2)
  1. ASUNRA [Suspect]
     Indication: THALASSAEMIA BETA
     Dosage: 1200 MG, UNK
     Route: 048
     Dates: start: 20080909, end: 20100519
  2. ASUNRA [Suspect]
     Indication: IRON OVERLOAD
     Dosage: 25 MG/KG/DAY

REACTIONS (6)
  - ALBUMIN URINE PRESENT [None]
  - BLOOD CREATININE INCREASED [None]
  - HYPERTENSIVE NEPHROPATHY [None]
  - OEDEMA PERIPHERAL [None]
  - PYURIA [None]
  - SWELLING FACE [None]
